FAERS Safety Report 10429750 (Version 1)
Quarter: 2014Q3

REPORT INFORMATION
  Report Type: Spontaneous
  Country: US (occurrence: US)
  Receive Date: 20140904
  Receipt Date: 20140904
  Transmission Date: 20150326
  Serious: Yes (Death)
  Sender: FDA-Public Use
  Company Number: US-MALLINCKRODT-T201403236

PATIENT
  Age: 23 Year
  Sex: Female

DRUGS (2)
  1. TECHNESCAN LYOMAA (ALBUMIN (HUMAN)\STANNOUS CHLORIDE) [Suspect]
     Active Substance: ALBUMIN (HUMAN)\STANNOUS CHLORIDE
     Indication: VENTILATION/PERFUSION SCAN
     Dosage: 1.5 MG/KG
     Route: 042
  2. ULTRA-TECHNEKOW DTE [Suspect]
     Active Substance: MOLYBDENUM MO-99\TECHNETIUM TC-99M
     Indication: VENTILATION/PERFUSION SCAN
     Dosage: UNK
     Route: 042

REACTIONS (3)
  - Respiratory distress [Fatal]
  - Cyanosis [Fatal]
  - General physical health deterioration [None]
